FAERS Safety Report 4514146-0 (Version None)
Quarter: 2004Q4

REPORT INFORMATION
  Report Type: 
  Country: None (occurrence: None)
  Receive Date: 20041124
  Receipt Date: 20041108
  Transmission Date: 20050328
  Serious: Yes (Death)
  Sender: FDA-Public Use
  Company Number: 210614

PATIENT
  Age: 72 Year
  Sex: Female
  Weight: 59.5 kg

DRUGS (7)
  1. AVASTIN [Suspect]
     Indication: COLON CANCER METASTATIC
     Dosage: 5 MG/KG, Q2W, INTRAVENOUS
     Route: 042
     Dates: start: 20040930
  2. FLUOROURACIL [Suspect]
     Indication: COLORECTAL CANCER METASTATIC
     Dosage: 3200 MG, 1/WEEK, INTRAVENOUS
     Route: 042
     Dates: start: 20040930
  3. OXALIPLATIN [Suspect]
     Indication: COLORECTAL CANCER METASTATIC
     Dosage: 80 MG, 1/WEEK, INTRAVENOUS
     Route: 042
     Dates: start: 20040930
  4. RIBOFLAVIN (RIBOFLAVIN) [Suspect]
     Indication: COLORECTAL CANCER METASTATIC
     Dosage: 800 MG, 1/WEEK
     Dates: start: 20040930
  5. VITAMIN B6 [Concomitant]
  6. THYROXINE (LEVOTHYROXINE SODIUM) [Concomitant]
  7. NITRENDIPIN (NITRENDIPINE) [Concomitant]

REACTIONS (5)
  - DIARRHOEA [None]
  - GASTROINTESTINAL HAEMORRHAGE [None]
  - LEUKOPENIA [None]
  - PERITONITIS [None]
  - SEPSIS [None]
